FAERS Safety Report 24787516 (Version 1)
Quarter: 2024Q4

REPORT INFORMATION
  Report Type: Spontaneous
  Country: CN (occurrence: CN)
  Receive Date: 20241230
  Receipt Date: 20241230
  Transmission Date: 20250115
  Serious: Yes (Other)
  Sender: Kenvue
  Company Number: CN-KENVUE-20241207175

PATIENT

DRUGS (1)
  1. RHINOCORT [Suspect]
     Active Substance: BUDESONIDE
     Indication: Rhinitis allergic
     Dosage: DOSAGE FORM:SPRAY , 64 MICROGRAM, 1-2 SPRAYS/TIME, TWICE A DAY, NASAL SPRAY FORMULATION
     Route: 061
     Dates: start: 20241129, end: 20241130

REACTIONS (5)
  - Incorrect route of product administration [Unknown]
  - Incorrect dose administered [Unknown]
  - Rash [Recovering/Resolving]
  - Swelling face [Recovered/Resolved]
  - Papule [Recovered/Resolved]

NARRATIVE: CASE EVENT DATE: 20241129
